FAERS Safety Report 19845700 (Version 11)
Quarter: 2022Q1

REPORT INFORMATION
  Report Type: Report from Study
  Country: US (occurrence: US)
  Receive Date: 20210917
  Receipt Date: 20220125
  Transmission Date: 20220423
  Serious: Yes (Hospitalization)
  Sender: FDA-Public Use
  Company Number: US-VIIV HEALTHCARE LIMITED-US2021194240

PATIENT
  Age: 34 Year
  Sex: Female

DRUGS (22)
  1. CABOTEGRAVIR [Suspect]
     Active Substance: CABOTEGRAVIR
     Indication: HIV infection
     Dosage: 1 DF, 1D
     Route: 048
     Dates: start: 20210504, end: 20210608
  2. FENTANYL [Concomitant]
     Active Substance: FENTANYL
     Indication: Musculoskeletal pain
     Dosage: 50 ?G, PRN
     Route: 042
     Dates: start: 20210916, end: 20210916
  3. ONDANSETRON [Concomitant]
     Active Substance: ONDANSETRON
     Indication: Musculoskeletal pain
     Dosage: 4 MG, SINGLE
     Route: 042
     Dates: start: 20210916, end: 20210916
  4. KETOROLAC [Concomitant]
     Active Substance: KETOROLAC TROMETHAMINE
     Indication: Musculoskeletal pain
     Dosage: 15 MG, PRN
     Route: 042
     Dates: start: 20210915, end: 20210916
  5. ACETAMINOPHEN [Concomitant]
     Active Substance: ACETAMINOPHEN
     Indication: Musculoskeletal pain
     Dosage: 650 MG, PRN
     Route: 048
     Dates: start: 20210915, end: 20210916
  6. SODIUM CHLORIDE + VANCOMYCIN [Concomitant]
     Indication: Musculoskeletal pain
     Dosage: 1000 MG, SINGLE
     Route: 042
     Dates: start: 20210915, end: 20210915
  7. FAMOTIDINE [Concomitant]
     Active Substance: FAMOTIDINE
     Indication: Musculoskeletal pain
     Dosage: 20 MG, SINGLE
     Route: 042
     Dates: start: 20210910, end: 20210910
  8. FAMOTIDINE [Concomitant]
     Active Substance: FAMOTIDINE
     Dosage: 20 MG, SINGLE
     Route: 042
     Dates: start: 20210916, end: 20210916
  9. MORPHINE SULFATE [Concomitant]
     Active Substance: MORPHINE SULFATE
     Indication: Musculoskeletal pain
     Dosage: 4 MG, SINGLE
     Route: 042
     Dates: start: 20210910, end: 20210910
  10. ONDANSETRON HYDROCHLORIDE [Concomitant]
     Active Substance: ONDANSETRON HYDROCHLORIDE
     Indication: Musculoskeletal pain
     Dosage: 4 MG, PRN
     Route: 042
     Dates: start: 20210910, end: 20210912
  11. KETOROLAC TROMETHAMINE [Concomitant]
     Active Substance: KETOROLAC TROMETHAMINE
     Indication: Musculoskeletal pain
     Dosage: 60 MG, SINGLE
     Route: 030
     Dates: start: 20210910, end: 20210910
  12. KETOROLAC TROMETHAMINE [Concomitant]
     Active Substance: KETOROLAC TROMETHAMINE
     Dosage: 15 MG, PRN
     Route: 042
     Dates: start: 20210910, end: 20210912
  13. CYCLOBENZAPRINE [Concomitant]
     Active Substance: CYCLOBENZAPRINE
     Indication: Musculoskeletal pain
     Dosage: 10 MG, TID
     Route: 048
     Dates: start: 20210910, end: 20210912
  14. TRAMADOL [Concomitant]
     Active Substance: TRAMADOL
     Indication: Musculoskeletal pain
     Dosage: 50 MG, TID
     Route: 048
     Dates: start: 20210910, end: 20210912
  15. ENOXAPARIN SODIUM [Concomitant]
     Active Substance: ENOXAPARIN SODIUM
     Indication: Musculoskeletal pain
     Dosage: 40 MG, 1D
     Route: 058
     Dates: start: 20210910, end: 20210912
  16. VANCOMYCIN HYDROCHLORIDE [Concomitant]
     Active Substance: VANCOMYCIN HYDROCHLORIDE
     Indication: Musculoskeletal pain
     Dosage: 1 UNK, PRN
     Route: 042
     Dates: start: 20210910, end: 20210912
  17. VANCOMYCIN HYDROCHLORIDE [Concomitant]
     Active Substance: VANCOMYCIN HYDROCHLORIDE
     Dosage: 3000 MG, TID
     Route: 042
     Dates: start: 20210911, end: 20210912
  18. POTASSIUM CHLORIDE [Concomitant]
     Active Substance: POTASSIUM CHLORIDE
     Indication: Musculoskeletal pain
     Dosage: 40 MEQ, SINGLE
     Route: 048
     Dates: start: 20210911, end: 20210911
  19. CEFTRIAXONE SODIUM [Concomitant]
     Active Substance: CEFTRIAXONE SODIUM
     Indication: Musculoskeletal pain
     Dosage: 1 G, QID
     Route: 042
     Dates: start: 20210910, end: 20210911
  20. CEFEPIME HYDROCHLORIDE [Concomitant]
     Active Substance: CEFEPIME HYDROCHLORIDE
     Indication: Musculoskeletal pain
     Dosage: 4 G, BID
     Route: 042
     Dates: start: 20210911, end: 20210912
  21. SODIUM CHLORIDE + VANCOMYCIN HYDROCHLORIDE [Concomitant]
     Indication: Musculoskeletal pain
     Dosage: 1250 MG, SINGLE
     Route: 042
     Dates: start: 20210910, end: 20210910
  22. SODIUM CHLORIDE + VANCOMYCIN HYDROCHLORIDE [Concomitant]
     Dosage: 1250 MG, SINGLE
     Route: 042
     Dates: start: 20210912, end: 20210912

REACTIONS (1)
  - Injection site pain [Recovered/Resolved with Sequelae]

NARRATIVE: CASE EVENT DATE: 20210823
